FAERS Safety Report 9954967 (Version 2)
Quarter: 2014Q1

REPORT INFORMATION
  Report Type: Spontaneous
  Country: PR (occurrence: PR)
  Receive Date: 20140304
  Receipt Date: 20140304
  Transmission Date: 20141002
  Serious: No
  Sender: FDA-Public Use
  Company Number: PR-ABBVIE-12P-131-0992364-00

PATIENT
  Sex: Female
  Weight: 49.94 kg

DRUGS (11)
  1. HUMIRA [Suspect]
     Indication: RHEUMATOID ARTHRITIS
     Route: 058
     Dates: start: 2006, end: 20121005
  2. HUMIRA [Suspect]
     Route: 058
     Dates: start: 201210
  3. PREDNISONE [Concomitant]
     Indication: RHEUMATOID ARTHRITIS
     Route: 048
  4. NEURONTIN [Concomitant]
     Indication: RHEUMATOID ARTHRITIS
     Route: 048
  5. LOSARTAN [Concomitant]
     Indication: HYPERTENSION
     Route: 048
  6. PROTONIX [Concomitant]
     Indication: DYSPEPSIA
     Route: 048
  7. PREMARIN [Concomitant]
     Indication: PROPHYLAXIS
     Route: 048
  8. SINGULAR [Concomitant]
     Indication: PULMONARY FIBROSIS
     Route: 048
  9. CYSTATIN [Concomitant]
     Indication: BLOOD CHOLESTEROL
     Route: 048
  10. ASPIRINE [Concomitant]
     Indication: PROPHYLAXIS
     Route: 048
  11. ADVAIR [Concomitant]
     Indication: FATIGUE
     Route: 048

REACTIONS (1)
  - Pleuritic pain [Recovered/Resolved]
